FAERS Safety Report 8882090 (Version 2)
Quarter: 2012Q4

REPORT INFORMATION
  Report Type: 
  Country: US (occurrence: US)
  Receive Date: 20121102
  Receipt Date: 20121130
  Transmission Date: 20130627
  Serious: Yes (Hospitalization)
  Sender: FDA-Public Use
  Company Number: US-AMGEN-USASP2012069301

PATIENT
  Age: 89 Year
  Sex: Female
  Weight: 53.97 kg

DRUGS (8)
  1. PROLIA [Suspect]
     Indication: OSTEOPOROSIS POSTMENOPAUSAL
     Dosage: 60 mg, q6mo
     Dates: start: 20110509, end: 20120726
  2. ZOLOFT [Concomitant]
  3. ISOBAR                             /00987901/ [Concomitant]
  4. VITAMINS                           /00067501/ [Concomitant]
  5. ZOCOR [Concomitant]
  6. CO Q 10                            /00517201/ [Concomitant]
  7. VITAMIN D /00107901/ [Concomitant]
  8. LUTEIN                             /06447201/ [Concomitant]

REACTIONS (5)
  - Fall [Unknown]
  - Pelvic fracture [Unknown]
  - Wrist fracture [Not Recovered/Not Resolved]
  - Impaired healing [Not Recovered/Not Resolved]
  - Toothache [Unknown]
